FAERS Safety Report 25154107 (Version 5)
Quarter: 2025Q2

REPORT INFORMATION
  Report Type: Report from Study
  Country: CA (occurrence: CA)
  Receive Date: 20250403
  Receipt Date: 20250519
  Transmission Date: 20250717
  Serious: Yes (Other)
  Sender: ALEXION PHARMACEUTICALS
  Company Number: CA-AstraZeneca-CH-00837225A

PATIENT
  Weight: 141 kg

DRUGS (6)
  1. TEZEPELUMAB [Suspect]
     Active Substance: TEZEPELUMAB
     Indication: Asthma
  2. TEZEPELUMAB [Suspect]
     Active Substance: TEZEPELUMAB
  3. ETANERCEPT [Suspect]
     Active Substance: ETANERCEPT
  4. VENTOLIN [Concomitant]
     Active Substance: ALBUTEROL SULFATE
     Dosage: 100 MICROGRAM, QID (2 INJ, PRN)
  5. GLYCOPYRROLATE [Concomitant]
     Active Substance: GLYCOPYRROLATE
     Dosage: 200 MICROGRAM, BID (4 INH)
  6. SPIRIVA RESPIMAT [Concomitant]
     Active Substance: TIOTROPIUM BROMIDE

REACTIONS (12)
  - Bone cancer [Unknown]
  - Pain in extremity [Unknown]
  - Nausea [Recovered/Resolved]
  - Secretion discharge [Recovered/Resolved]
  - Dyspnoea [Recovered/Resolved]
  - Wheezing [Recovered/Resolved]
  - Rhonchi [Recovered/Resolved]
  - Sinus disorder [Not Recovered/Not Resolved]
  - Increased bronchial secretion [Unknown]
  - Anaemia [Unknown]
  - Fatigue [Unknown]
  - Cough [Unknown]
